FAERS Safety Report 11394732 (Version 3)
Quarter: 2015Q3

REPORT INFORMATION
  Report Type: Spontaneous
  Country: US (occurrence: US)
  Receive Date: 20150819
  Receipt Date: 20150909
  Transmission Date: 20151125
  Serious: Yes (Other)
  Sender: FDA-Public Use
  Company Number: US-AMGEN-USASP2015083273

PATIENT
  Age: 58 Year
  Sex: Female
  Weight: 65.76 kg

DRUGS (30)
  1. MOXIFLOXACIN. [Concomitant]
     Active Substance: MOXIFLOXACIN
     Dosage: 1 DROP, QID
  2. MYRBETRIQ [Concomitant]
     Active Substance: MIRABEGRON
     Dosage: 1 DF, QD
  3. FUROSEMIDE. [Concomitant]
     Active Substance: FUROSEMIDE
     Dosage: 4 DF, QD
     Route: 048
  4. MIRTAZAPINE. [Concomitant]
     Active Substance: MIRTAZAPINE
     Dosage: UNK UNK, QD
     Route: 048
  5. KLOR-CON M20 [Concomitant]
     Active Substance: POTASSIUM CHLORIDE
     Dosage: 1 DF, QD
     Route: 048
  6. ADVAIR HFA [Concomitant]
     Active Substance: FLUTICASONE PROPIONATE\SALMETEROL XINAFOATE
     Dosage: 1 DF, BID
     Route: 048
  7. FOSAMAX [Concomitant]
     Active Substance: ALENDRONATE SODIUM
     Indication: OSTEOPENIA
     Dosage: UNK UNK, QWK
     Dates: start: 201102
  8. PREDNISONE. [Concomitant]
     Active Substance: PREDNISONE
     Dosage: 1 DF, QD
     Route: 048
  9. PLAQUENIL [Concomitant]
     Active Substance: HYDROXYCHLOROQUINE SULFATE
     Dosage: 2 DF, QD
  10. HYDROXYCHLOROQUINE [Concomitant]
     Active Substance: HYDROXYCHLOROQUINE
     Dosage: 2 DF, QD
     Route: 048
  11. OMEPRAZOLE. [Concomitant]
     Active Substance: OMEPRAZOLE
     Dosage: 1 DF, QD
     Route: 048
  12. ALENDRONATE [Concomitant]
     Active Substance: ALENDRONATE SODIUM
     Dosage: 1 DF, QWK
     Route: 048
  13. XANAX [Concomitant]
     Active Substance: ALPRAZOLAM
     Dosage: 1-2 TABLETS, AT BEDTIME
     Route: 048
  14. FOLIC ACID. [Concomitant]
     Active Substance: FOLIC ACID
     Dosage: 1 DF, QD
  15. SULFASALAZINE. [Concomitant]
     Active Substance: SULFASALAZINE
     Dosage: UNK
  16. VITAMIN D                          /00107901/ [Concomitant]
     Active Substance: ERGOCALCIFEROL
     Dosage: 2000 IU, QD
  17. PROAIR HFA [Concomitant]
     Active Substance: ALBUTEROL SULFATE
     Dosage: 1-2 PUFFS BY INHALATION EVERY 4 TO 6 HOURS AS NEEDED
  18. LISINOPRIL. [Concomitant]
     Active Substance: LISINOPRIL
     Dosage: 1 DF, QD
     Route: 048
  19. ENBREL [Suspect]
     Active Substance: ETANERCEPT
     Indication: RHEUMATOID ARTHRITIS
     Dosage: 50 MG, QWK
     Route: 058
     Dates: start: 2013
  20. SULFASALAZINE. [Concomitant]
     Active Substance: SULFASALAZINE
     Dosage: 1 DF, BID
  21. CALCIUM [Concomitant]
     Active Substance: CALCIUM
     Dosage: 1200 MG, QD
  22. NEVANAC [Concomitant]
     Active Substance: NEPAFENAC
     Dosage: 1 DROP, TID
  23. SULFASALAZINE. [Concomitant]
     Active Substance: SULFASALAZINE
     Dosage: 2 DF, BID
     Route: 048
  24. PREDNISOLONE. [Concomitant]
     Active Substance: PREDNISOLONE
     Dosage: 1 DROP, QID
  25. ALBUTEROL W/IPRATROPIUM [Concomitant]
     Active Substance: ALBUTEROL\IPRATROPIUM
     Dosage: 1 DF, EVERY 4 HOURS AS NECESSARY
  26. PREDNISONE. [Concomitant]
     Active Substance: PREDNISONE
     Dosage: 5 MG, QD
  27. TIZANIDINE. [Concomitant]
     Active Substance: TIZANIDINE
     Dosage: 1 DF, TID
     Route: 048
  28. FLUTICASONE PROPIONATE. [Concomitant]
     Active Substance: FLUTICASONE PROPIONATE
     Dosage: 1 SPRAY IN EACH NOSTRIL, BID
  29. DULERA [Concomitant]
     Active Substance: FORMOTEROL FUMARATE DIHYDRATE\MOMETASONE FUROATE
     Dosage: 2 PUFFS BY INHALATION, BID
  30. TRIAMCINOLONE ACETONIDE. [Concomitant]
     Active Substance: TRIAMCINOLONE ACETONIDE
     Dosage: APPLY EXTERNALLY ONE TO TWO TIMES, QD

REACTIONS (27)
  - Seronegative arthritis [Unknown]
  - Vitreous detachment [Unknown]
  - Laceration [Recovered/Resolved]
  - Arthralgia [Unknown]
  - Gastrooesophageal reflux disease [Unknown]
  - Sinusitis [Unknown]
  - Oedema [Unknown]
  - Visual impairment [Unknown]
  - Limb injury [Unknown]
  - Vision blurred [Unknown]
  - Carotid artery stenosis [Unknown]
  - Depression [Unknown]
  - Wound infection [Recovered/Resolved]
  - Back pain [Unknown]
  - Haemorrhage [Unknown]
  - Neck pain [Unknown]
  - Discomfort [Recovered/Resolved]
  - Osteoarthritis [Unknown]
  - Foot operation [Unknown]
  - Osteopenia [Unknown]
  - Insomnia [Unknown]
  - Obstructive airways disorder [Unknown]
  - Urge incontinence [Unknown]
  - Benign neoplasm of adrenal gland [Unknown]
  - Essential hypertension [Unknown]
  - Pain [Unknown]
  - Hypercholesterolaemia [Unknown]

NARRATIVE: CASE EVENT DATE: 20150731
